FAERS Safety Report 7039258-1 (Version None)
Quarter: 2010Q4

REPORT INFORMATION
  Report Type: 
  Country: None (occurrence: None)
  Receive Date: 20101012
  Receipt Date: 20100927
  Transmission Date: 20110411
  Serious: Yes (Other)
  Sender: FDA-Public Use
  Company Number: US-PFIZER INC-2010122459

PATIENT

DRUGS (1)
  1. VIAGRA [Suspect]

REACTIONS (1)
  - VISUAL IMPAIRMENT [None]
